FAERS Safety Report 4467996-3 (Version None)
Quarter: 2004Q4

REPORT INFORMATION
  Report Type: 
  Country: None (occurrence: None)
  Receive Date: 20041001
  Receipt Date: 20040910
  Transmission Date: 20050328
  Serious: Yes (Other)
  Sender: FDA-Public Use
  Company Number: RB-933-2004

PATIENT
  Age: 40 Year
  Sex: Female

DRUGS (1)
  1. BUPRENORPHINE HCL [Suspect]
     Indication: DRUG DEPENDENCE
     Dosage: 16 MG QD SL
     Route: 060

REACTIONS (3)
  - HALLUCINATION [None]
  - HYPERVIGILANCE [None]
  - NIGHTMARE [None]
